FAERS Safety Report 23203086 (Version 1)
Quarter: 2023Q4

REPORT INFORMATION
  Report Type: Spontaneous
  Country: ET (occurrence: ET)
  Receive Date: 20231120
  Receipt Date: 20231120
  Transmission Date: 20240110
  Serious: Yes (Death, Hospitalization)
  Sender: FDA-Public Use
  Company Number: ET-STRIDES ARCOLAB LIMITED-2023SP016898

PATIENT
  Age: 27 Year
  Sex: Male

DRUGS (8)
  1. PREDNISOLONE [Suspect]
     Active Substance: PREDNISOLONE
     Indication: Tuberculosis
     Dosage: 40 MILLIGRAM, BID
     Route: 048
  2. VANCOMYCIN [Suspect]
     Active Substance: VANCOMYCIN
     Indication: Tuberculosis
     Dosage: 1 GRAM, BID
     Route: 042
  3. CEFTAZIDIME [Suspect]
     Active Substance: CEFTAZIDIME
     Indication: Tuberculosis
     Dosage: 2 GRAM, TID
     Route: 042
  4. COTRIMOXAZOLE [Suspect]
     Active Substance: SULFAMETHOXAZOLE\TRIMETHOPRIM
     Indication: Tuberculosis
     Dosage: 1920 MILLIGRAM, BID
     Route: 048
  5. NOREPINEPHRINE [Concomitant]
     Active Substance: NOREPINEPHRINE
     Indication: Hypotension
     Dosage: UNK
     Route: 065
  6. NOREPINEPHRINE [Concomitant]
     Active Substance: NOREPINEPHRINE
     Dosage: 50 MICROGRAM PER MINUTE (INCREASED TO A MAXIMUM DOSE OF 50 MICROG/MIN)
     Route: 065
  7. DOPAMINE [Concomitant]
     Active Substance: DOPAMINE HYDROCHLORIDE
     Indication: Hypotension
     Dosage: 10 MILLIGRAM/KILOGRAM PER MINUTE
     Route: 065
  8. DOPAMINE [Concomitant]
     Active Substance: DOPAMINE HYDROCHLORIDE
     Dosage: 40 MILLIGRAM/KILOGRAM PER MINUTE
     Route: 065

REACTIONS (5)
  - Acute respiratory distress syndrome [Fatal]
  - Septic shock [Fatal]
  - Multiple organ dysfunction syndrome [Fatal]
  - Condition aggravated [Fatal]
  - Drug ineffective [Fatal]
